FAERS Safety Report 7112222-X (Version None)
Quarter: 2010Q4

REPORT INFORMATION
  Report Type: 
  Country: None (occurrence: None)
  Receive Date: 20101119
  Receipt Date: 20100317
  Transmission Date: 20110411
  Serious: No
  Sender: FDA-Public Use
  Company Number: A0851468A

PATIENT

DRUGS (1)
  1. AVODART [Suspect]
     Route: 048

REACTIONS (3)
  - CHEST PAIN [None]
  - SKIN DISCOLOURATION [None]
  - SKIN REACTION [None]
